FAERS Safety Report 9166335 (Version 1)
Quarter: 2013Q1

REPORT INFORMATION
  Report Type: Spontaneous
  Country: US (occurrence: US)
  Receive Date: 20130315
  Receipt Date: 20130315
  Transmission Date: 20140127
  Serious: Yes (Other)
  Sender: FDA-Public Use
  Company Number: PHEH2013US005977

PATIENT
  Age: 67 Year
  Sex: Male

DRUGS (1)
  1. RECLAST [Suspect]
     Indication: OSTEOPOROSIS
     Dosage: 5 MG, UNK
     Route: 042
     Dates: start: 20110911, end: 20130311

REACTIONS (3)
  - Osteonecrosis of jaw [Not Recovered/Not Resolved]
  - Gingival recession [Unknown]
  - Tooth pulp haemorrhage [Unknown]
